FAERS Safety Report 19450406 (Version 1)
Quarter: 2021Q2

REPORT INFORMATION
  Report Type: Spontaneous
  Country: US (occurrence: US)
  Receive Date: 20210622
  Receipt Date: 20210622
  Transmission Date: 20210717
  Serious: Yes (Other)
  Sender: FDA-Public Use
  Company Number: US-SA-2021SA198035

PATIENT
  Age: 54 Year
  Sex: Female

DRUGS (1)
  1. LANTUS SOLOSTAR [Suspect]
     Active Substance: INSULIN GLARGINE
     Indication: TYPE 2 DIABETES MELLITUS
     Dosage: 120 IU TWICE A DAY
     Route: 065

REACTIONS (3)
  - Visual impairment [Recovered/Resolved with Sequelae]
  - Inappropriate schedule of product administration [Unknown]
  - Cataract [Recovered/Resolved with Sequelae]
